FAERS Safety Report 4653458-7 (Version None)
Quarter: 2005Q2

REPORT INFORMATION
  Report Type: 
  Country: None (occurrence: None)
  Receive Date: 20050505
  Receipt Date: 20050502
  Transmission Date: 20051028
  Serious: Yes (Other)
  Sender: FDA-Public Use
  Company Number: US-GLAXOSMITHKLINE-A0556948A

PATIENT
  Age: 74 Year
  Sex: Male

DRUGS (4)
  1. COREG [Suspect]
     Indication: HYPERTENSION
     Route: 048
  2. ALTACE [Concomitant]
  3. NEXIUM [Concomitant]
  4. WELCHOL [Concomitant]

REACTIONS (3)
  - EYE PAIN [None]
  - VISUAL ACUITY REDUCED [None]
  - VISUAL DISTURBANCE [None]
